FAERS Safety Report 12248907 (Version 1)
Quarter: 2016Q2

REPORT INFORMATION
  Report Type: Spontaneous
  Country: US (occurrence: None)
  Receive Date: 20160407
  Receipt Date: 20160407
  Transmission Date: 20160815
  Serious: Yes (Hospitalization)
  Sender: FDA-Public Use
  Company Number: None

PATIENT
  Age: 49 Year
  Sex: Male

DRUGS (1)
  1. ADCIRCA [Suspect]
     Active Substance: TADALAFIL

REACTIONS (3)
  - Pulmonary arterial hypertension [None]
  - Lung transplant [None]
  - Therapy cessation [None]

NARRATIVE: CASE EVENT DATE: 20160212
